FAERS Safety Report 4700677-7 (Version None)
Quarter: 2005Q2

REPORT INFORMATION
  Report Type: 
  Country: None (occurrence: None)
  Receive Date: 20050627
  Receipt Date: 20050608
  Transmission Date: 20051028
  Serious: Yes (Hospitalization)
  Sender: FDA-Public Use
  Company Number: 215020

PATIENT
  Age: 74 Year
  Sex: Female

DRUGS (2)
  1. MABTHERA (RITUXIMAB) CONC FOR SOLUTION FOR INFUSION [Suspect]
     Indication: NON-HODGKIN'S LYMPHOMA
     Dosage: 600 MG, INTRAVENOUS
     Route: 042
     Dates: start: 20040705, end: 20041128
  2. FLUDARA [Suspect]
     Indication: NON-HODGKIN'S LYMPHOMA
     Dosage: 60 MG, DI TO D3, ORAL
     Route: 048
     Dates: start: 20040705, end: 20041128

REACTIONS (4)
  - CARCINOMA IN SITU [None]
  - SQUAMOUS CELL CARCINOMA [None]
  - VULVAL CANCER RECURRENT [None]
  - VULVAR DYSPLASIA [None]
